FAERS Safety Report 5774818-7 (Version None)
Quarter: 2008Q2

REPORT INFORMATION
  Report Type: 
  Country: None (occurrence: None)
  Receive Date: 20080616
  Receipt Date: 20080616
  Transmission Date: 20081010
  Serious: Yes (Hospitalization)
  Sender: FDA-Public Use
  Company Number: None

PATIENT
  Sex: Male
  Weight: 129.2752 kg

DRUGS (11)
  1. BYETTA [Suspect]
     Dosage: 10 MICROGRAMS BID SUBQ.
     Route: 058
     Dates: start: 20080521
  2. FUROSEMIDE [Concomitant]
  3. CARDIZEM [Concomitant]
  4. ZOCOR [Concomitant]
  5. GLYBURIDE [Concomitant]
  6. PLAVIX [Concomitant]
  7. TRAMADOL HCL [Concomitant]
  8. AVAPRO [Concomitant]
  9. PERCOCET [Concomitant]
  10. COLCHICINE [Concomitant]
  11. XOPENEX [Concomitant]

REACTIONS (1)
  - ANAPHYLACTIC REACTION [None]
